FAERS Safety Report 18456718 (Version 1)
Quarter: 2020Q4

REPORT INFORMATION
  Report Type: Spontaneous
  Country: US (occurrence: US)
  Receive Date: 20201103
  Receipt Date: 20201103
  Transmission Date: 20210114
  Serious: No
  Sender: FDA-Public Use
  Company Number: US-GALDERMA-US2020010928

PATIENT
  Sex: Female

DRUGS (4)
  1. DESONIDE (DESONIDE) 0.05% [Suspect]
     Active Substance: DESONIDE
     Indication: SEBORRHOEIC DERMATITIS
     Dosage: 0.05%
     Route: 061
  2. ELIDE [Concomitant]
     Indication: PRODUCT USED FOR UNKNOWN INDICATION
     Route: 065
  3. TACROLIMUS. [Concomitant]
     Active Substance: TACROLIMUS
     Indication: PRODUCT USED FOR UNKNOWN INDICATION
     Route: 065
  4. METROCREAM [Suspect]
     Active Substance: METRONIDAZOLE
     Indication: SEBORRHOEIC DERMATITIS
     Dosage: 0.75%
     Route: 061

REACTIONS (4)
  - Skin burning sensation [Unknown]
  - Seborrhoeic dermatitis [Unknown]
  - Product use in unapproved indication [Recovered/Resolved]
  - Condition aggravated [Unknown]
